FAERS Safety Report 23623147 (Version 1)
Quarter: 2024Q1

REPORT INFORMATION
  Report Type: Spontaneous
  Country: CA (occurrence: CA)
  Receive Date: 20240312
  Receipt Date: 20240312
  Transmission Date: 20240410
  Serious: Yes (Other)
  Sender: FDA-Public Use
  Company Number: CA-ANIPHARMA-2024-CA-001527

PATIENT
  Sex: Female

DRUGS (9)
  1. CANDESARTAN CILEXETIL [Suspect]
     Active Substance: CANDESARTAN CILEXETIL
     Indication: Product used for unknown indication
     Dosage: 16 MG DAILY
  2. BUDESONIDE\FORMOTEROL FUMARATE [Suspect]
     Active Substance: BUDESONIDE\FORMOTEROL FUMARATE
     Dosage: 2 EVERY 1 DAYS
  3. ESOMEPRAZOLE [Suspect]
     Active Substance: ESOMEPRAZOLE
     Dosage: 40 MG BID
  4. ROSUVASTATIN [Suspect]
     Active Substance: ROSUVASTATIN
     Dosage: 5 MG DAILY
  5. FOLIC ACID [Suspect]
     Active Substance: FOLIC ACID
  6. METHOTREXATE [Suspect]
     Active Substance: METHOTREXATE
     Dosage: 2.5 MG
  7. TIOTROPIUM [Suspect]
     Active Substance: TIOTROPIUM
     Dosage: 2.5 UG
  8. FLUTICASONE [Suspect]
     Active Substance: FLUTICASONE
     Dosage: 27.5 MG DAILY
  9. VENLAFAXINE [Suspect]
     Active Substance: VENLAFAXINE HYDROCHLORIDE
     Dosage: 75 MG DAILY

REACTIONS (8)
  - Chronic sinusitis [Unknown]
  - Dyslipidaemia [Unknown]
  - Myalgia [Unknown]
  - Neurosarcoidosis [Unknown]
  - Obstructive sleep apnoea syndrome [Unknown]
  - Pulmonary sarcoidosis [Unknown]
  - Sarcoidosis [Unknown]
  - Thyroid mass [Unknown]
